FAERS Safety Report 25702771 (Version 2)
Quarter: 2025Q3

REPORT INFORMATION
  Report Type: Spontaneous
  Country: EU (occurrence: EU)
  Receive Date: 20250819
  Receipt Date: 20250904
  Transmission Date: 20251020
  Serious: Yes (Hospitalization, Other)
  Sender: ANI
  Company Number: EU-ANIPHARMA-2025-PL-000022

PATIENT
  Age: 39 Year
  Sex: Male

DRUGS (8)
  1. ANASTROZOLE [Suspect]
     Active Substance: ANASTROZOLE
     Indication: Performance enhancing product use
  2. NANDROLONE [Suspect]
     Active Substance: NANDROLONE
     Indication: Performance enhancing product use
  3. TESTOSTERONE [Suspect]
     Active Substance: TESTOSTERONE
     Indication: Performance enhancing product use
  4. CABERGOLINE [Suspect]
     Active Substance: CABERGOLINE
     Indication: Performance enhancing product use
  5. ALPRAZOLAM [Concomitant]
     Active Substance: ALPRAZOLAM
  6. DIAZEPAM [Concomitant]
     Active Substance: DIAZEPAM
  7. SOMATROPIN [Suspect]
     Active Substance: SOMATROPIN
     Indication: Performance enhancing product use
  8. MECASERMIN [Suspect]
     Active Substance: MECASERMIN
     Indication: Performance enhancing product use

REACTIONS (11)
  - Andropause [Unknown]
  - Self-medication [Unknown]
  - Arteriosclerosis coronary artery [Unknown]
  - Postprandial hypoglycaemia [Unknown]
  - Chest pain [Unknown]
  - Chest discomfort [Unknown]
  - Ulcer [Unknown]
  - Irritable bowel syndrome [Unknown]
  - Laboratory test abnormal [Unknown]
  - Hypertension [Unknown]
  - Performance enhancing product use [Unknown]
